FAERS Safety Report 11409725 (Version 2)
Quarter: 2015Q4

REPORT INFORMATION
  Report Type: Report from Study
  Country: BR (occurrence: BR)
  Receive Date: 20150824
  Receipt Date: 20151027
  Transmission Date: 20160304
  Serious: Yes (Disabling)
  Sender: FDA-Public Use
  Company Number: BR-ROCHE-1095122

PATIENT
  Age: 78 Year
  Sex: Female
  Weight: 60 kg

DRUGS (19)
  1. ALDACTONE (BRAZIL) [Concomitant]
     Route: 065
  2. PARATRAM [Concomitant]
     Active Substance: ACETAMINOPHEN\TRAMADOL HYDROCHLORIDE
  3. ALDACTONE (BRAZIL) [Concomitant]
     Route: 065
  4. ADDERA PLUS [Concomitant]
     Route: 065
  5. METHOTREXATE [Concomitant]
     Active Substance: METHOTREXATE
     Route: 065
  6. ACTEMRA [Suspect]
     Active Substance: TOCILIZUMAB
     Route: 042
     Dates: start: 20130725
  7. ASPIRIN. [Concomitant]
     Active Substance: ASPIRIN
     Route: 065
  8. ACTEMRA [Suspect]
     Active Substance: TOCILIZUMAB
     Route: 042
     Dates: start: 20140217
  9. NAPRIX [Concomitant]
     Active Substance: RAMIPRIL
     Dosage: ADMINISTERED IN THE MORNING
     Route: 065
  10. MAGNESIUM CHLORIDE. [Concomitant]
     Active Substance: MAGNESIUM CHLORIDE
     Route: 065
  11. PROFLAM (BRAZIL) [Concomitant]
     Route: 065
  12. DEPURA [Concomitant]
     Active Substance: CHOLECALCIFEROL
  13. VENLIFT [Concomitant]
     Active Substance: VENLAFAXINE HYDROCHLORIDE
  14. ACTONEL [Concomitant]
     Active Substance: RISEDRONATE SODIUM
     Route: 065
  15. ACTEMRA [Suspect]
     Active Substance: TOCILIZUMAB
     Indication: RHEUMATOID ARTHRITIS
     Route: 042
     Dates: start: 20110215
  16. ACTEMRA [Suspect]
     Active Substance: TOCILIZUMAB
     Route: 042
     Dates: start: 20120717
  17. PANTOPRAZOL [Concomitant]
     Active Substance: PANTOPRAZOLE SODIUM
     Route: 065
  18. AZUKON [Concomitant]
     Active Substance: GLICLAZIDE
     Route: 065
  19. ACTOS [Concomitant]
     Active Substance: PIOGLITAZONE HYDROCHLORIDE

REACTIONS (18)
  - Joint swelling [Not Recovered/Not Resolved]
  - Depression [Not Recovered/Not Resolved]
  - Nausea [Unknown]
  - Immunodeficiency [Recovered/Resolved]
  - Hypoaesthesia [Unknown]
  - Arthropathy [Not Recovered/Not Resolved]
  - Malaise [Unknown]
  - Pain in extremity [Not Recovered/Not Resolved]
  - Weight decreased [Recovered/Resolved]
  - Renal pain [Not Recovered/Not Resolved]
  - Arthralgia [Not Recovered/Not Resolved]
  - Fall [Unknown]
  - Dyspnoea [Not Recovered/Not Resolved]
  - Fatigue [Not Recovered/Not Resolved]
  - Osteopenia [Not Recovered/Not Resolved]
  - Chills [Unknown]
  - Hip fracture [Recovering/Resolving]
  - Osteoporosis [Not Recovered/Not Resolved]

NARRATIVE: CASE EVENT DATE: 2013
